FAERS Safety Report 6658199-2 (Version None)
Quarter: 2010Q1

REPORT INFORMATION
  Report Type: 
  Country: None (occurrence: None)
  Receive Date: 20100330
  Receipt Date: 20100324
  Transmission Date: 20100710
  Serious: Yes (Other)
  Sender: FDA-Public Use
  Company Number: US-MERCK-1003USA03946

PATIENT
  Sex: Female

DRUGS (2)
  1. PRINIVIL [Suspect]
     Route: 048
  2. DILTIAZEM HYDROCHLORIDE [Suspect]
     Route: 065

REACTIONS (1)
  - HAEMORRHAGE [None]
